FAERS Safety Report 6328792-5 (Version None)
Quarter: 2009Q3

REPORT INFORMATION
  Report Type: 
  Country: None (occurrence: None)
  Receive Date: 20090826
  Receipt Date: 20090821
  Transmission Date: 20100115
  Serious: Yes (Other)
  Sender: FDA-Public Use
  Company Number: US-BRISTOL-MYERS SQUIBB COMPANY-14751234

PATIENT
  Sex: Female

DRUGS (3)
  1. COUMADIN [Suspect]
  2. HEPARIN SODIUM [Suspect]
  3. ASPIRIN [Suspect]

REACTIONS (2)
  - CARDIOVERSION [None]
  - INTERNATIONAL NORMALISED RATIO DECREASED [None]
